FAERS Safety Report 10586962 (Version 1)
Quarter: 2014Q4

REPORT INFORMATION
  Report Type: Spontaneous
  Country: US (occurrence: None)
  Receive Date: 20141114
  Receipt Date: 20141114
  Transmission Date: 20150529
  Serious: No
  Sender: FDA-Public Use
  Company Number: None

PATIENT
  Age: 72 Year
  Sex: Male
  Weight: 69.4 kg

DRUGS (1)
  1. OMEPRAZOLE. [Suspect]
     Active Substance: OMEPRAZOLE
     Indication: REGURGITATION
     Dosage: ABOUT 1.5 - 2 YEARS

REACTIONS (2)
  - Anaemia [None]
  - Blood iron decreased [None]

NARRATIVE: CASE EVENT DATE: 20141112
